FAERS Safety Report 19944067 (Version 1)
Quarter: 2021Q4

REPORT INFORMATION
  Report Type: Report from Study
  Country: US (occurrence: US)
  Receive Date: 20211011
  Receipt Date: 20211011
  Transmission Date: 20220303
  Serious: Yes (Other)
  Sender: FDA-Public Use
  Company Number: US-SHIRE-US201928629AA

PATIENT
  Age: 56 Year
  Sex: Female

DRUGS (14)
  1. ICATIBANT ACETATE [Suspect]
     Active Substance: ICATIBANT ACETATE
     Indication: Immune system disorder
     Dosage: 30 MILLIGRAM, AS REQ^D (EVERY 6 HOURS UO TO 3 DOSES)
     Route: 058
     Dates: start: 20180814
  2. ICATIBANT ACETATE [Suspect]
     Active Substance: ICATIBANT ACETATE
     Indication: Immune system disorder
     Dosage: 30 MILLIGRAM, AS REQ^D (EVERY 6 HOURS UO TO 3 DOSES)
     Route: 058
     Dates: start: 20180814
  3. ICATIBANT ACETATE [Suspect]
     Active Substance: ICATIBANT ACETATE
     Dosage: 30 MILLIGRAM, AS REQ^D (EVERY 6 HOURS UO TO 3 DOSES)
     Route: 058
     Dates: start: 20210624
  4. ICATIBANT ACETATE [Suspect]
     Active Substance: ICATIBANT ACETATE
     Dosage: 30 MILLIGRAM, AS REQ^D (EVERY 6 HOURS UO TO 3 DOSES)
     Route: 058
     Dates: start: 20210624
  5. CELECOXIB [Concomitant]
     Active Substance: CELECOXIB
  6. CLOPIDOGREL [Concomitant]
     Active Substance: CLOPIDOGREL BISULFATE
  7. SERTRALINE [Concomitant]
     Active Substance: SERTRALINE HYDROCHLORIDE
  8. CRESTOR [Concomitant]
     Active Substance: ROSUVASTATIN CALCIUM
  9. TAMOXIFEN CITRATE [Concomitant]
     Active Substance: TAMOXIFEN CITRATE
  10. ASPIRIN [Concomitant]
     Active Substance: ASPIRIN
  11. DANAZOL [Concomitant]
     Active Substance: DANAZOL
  12. METOPROLOL SUCCINATE [Concomitant]
     Active Substance: METOPROLOL SUCCINATE
  13. ZOLPIDEM [Concomitant]
     Active Substance: ZOLPIDEM TARTRATE
  14. CETIRIZINE [Concomitant]
     Active Substance: CETIRIZINE HYDROCHLORIDE

REACTIONS (2)
  - Breast cancer [Not Recovered/Not Resolved]
  - Bronchitis [Unknown]

NARRATIVE: CASE EVENT DATE: 20190828
